FAERS Safety Report 7404096-4 (Version None)
Quarter: 2011Q2

REPORT INFORMATION
  Report Type: 
  Country: None (occurrence: None)
  Receive Date: 20110408
  Receipt Date: 20110316
  Transmission Date: 20111010
  Serious: No
  Sender: FDA-Public Use
  Company Number: US-B.I. PHARMACEUTICALS,INC./RIDGEFIELD-2011-BP-08277BP

PATIENT
  Age: 80 Year
  Sex: Male

DRUGS (4)
  1. AMIODARONE [Concomitant]
  2. ANNLUPIN DEXSYLATE [Concomitant]
  3. PRADAXA [Suspect]
     Indication: ATRIAL FIBRILLATION
     Dosage: 300 MG
     Route: 048
     Dates: start: 20110315, end: 20110315
  4. COZAAR [Concomitant]

REACTIONS (1)
  - BLOOD PRESSURE FLUCTUATION [None]
